FAERS Safety Report 16415970 (Version 3)
Quarter: 2019Q3

REPORT INFORMATION
  Report Type: Report from Study
  Country: US (occurrence: US)
  Receive Date: 20190611
  Receipt Date: 20190729
  Transmission Date: 20191004
  Serious: Yes (Death, Other)
  Sender: FDA-Public Use
  Company Number: US-SA-2019SA157451

PATIENT
  Age: 80 Year
  Sex: Male

DRUGS (2)
  1. ALIROCUMAB [Suspect]
     Active Substance: ALIROCUMAB
     Indication: LOW DENSITY LIPOPROTEIN
     Dosage: 75 MG, QOW
     Route: 058
     Dates: start: 20190506, end: 20190603
  2. ALIROCUMAB [Suspect]
     Active Substance: ALIROCUMAB
     Indication: HYPERLIPIDAEMIA
     Dosage: 75 MG, QOW
     Route: 058
     Dates: start: 201906

REACTIONS (7)
  - Soft tissue swelling [Unknown]
  - Osteosclerosis [Unknown]
  - Death [Fatal]
  - Ligament sprain [Recovered/Resolved]
  - Hypoaesthesia [Unknown]
  - Arthralgia [Recovered/Resolved]
  - Foot deformity [Unknown]

NARRATIVE: CASE EVENT DATE: 20190531
